FAERS Safety Report 25608521 (Version 1)
Quarter: 2025Q3

REPORT INFORMATION
  Report Type: Spontaneous
  Country: US (occurrence: US)
  Receive Date: 20250726
  Receipt Date: 20250726
  Transmission Date: 20251020
  Serious: Yes (Other)
  Sender: AUROBINDO
  Company Number: US-AUROBINDO-AUR-APL-2025-037543

PATIENT
  Age: 55 Year
  Sex: Female

DRUGS (6)
  1. MYCOPHENOLIC ACID [Suspect]
     Active Substance: MYCOPHENOLIC ACID
     Indication: Cholangitis sclerosing
     Route: 065
  2. MYCOPHENOLIC ACID [Suspect]
     Active Substance: MYCOPHENOLIC ACID
     Indication: Cholangiocarcinoma
  3. PREDNISONE [Suspect]
     Active Substance: PREDNISONE
     Indication: Cholangitis sclerosing
     Route: 065
  4. PREDNISONE [Suspect]
     Active Substance: PREDNISONE
     Indication: Cholangiocarcinoma
  5. TACROLIMUS [Suspect]
     Active Substance: TACROLIMUS
     Indication: Cholangitis sclerosing
     Route: 065
  6. TACROLIMUS [Suspect]
     Active Substance: TACROLIMUS
     Indication: Cholangiocarcinoma

REACTIONS (2)
  - Cytomegalovirus infection [Recovering/Resolving]
  - Herpes simplex [Recovering/Resolving]
